FAERS Safety Report 12393267 (Version 2)
Quarter: 2016Q3

REPORT INFORMATION
  Report Type: Spontaneous
  Country: JP (occurrence: JP)
  Receive Date: 20160523
  Receipt Date: 20160826
  Transmission Date: 20161109
  Serious: Yes (Hospitalization, Other)
  Sender: FDA-Public Use
  Company Number: JP-009507513-1605JPN006489

PATIENT
  Age: 66 Year
  Sex: Female

DRUGS (3)
  1. SEIBULE [Concomitant]
     Active Substance: MIGLITOL
     Indication: TYPE 2 DIABETES MELLITUS
     Dosage: 50 MG, TID
     Route: 048
  2. GLUFAST [Concomitant]
     Active Substance: MITIGLINIDE
     Indication: TYPE 2 DIABETES MELLITUS
     Dosage: 50 MG, TID
     Route: 048
     Dates: start: 20150525
  3. JANUVIA [Suspect]
     Active Substance: SITAGLIPTIN PHOSPHATE
     Indication: TYPE 2 DIABETES MELLITUS
     Dosage: 50 MG, QD
     Route: 048

REACTIONS (1)
  - Jaw fracture [Recovered/Resolved]

NARRATIVE: CASE EVENT DATE: 20160506
